FAERS Safety Report 16837869 (Version 2)
Quarter: 2020Q4

REPORT INFORMATION
  Report Type: Spontaneous
  Country: DE (occurrence: DE)
  Receive Date: 20190923
  Receipt Date: 20201203
  Transmission Date: 20210113
  Serious: Yes (Other)
  Sender: FDA-Public Use
  Company Number: DE-TEVA-2019-DE-1111146

PATIENT
  Age: 81 Year
  Sex: Male

DRUGS (29)
  1. DIPHTHERIA AND TETANUS TOXOIDS AND PERTUSSIS VACCINE ADSORBED NOS [Concomitant]
     Active Substance: DIPHTHERIA AND TETANUS TOXOIDS AND PERTUSSIS VACCINE
     Indication: PERTUSSIS
     Dosage: UNK
     Dates: start: 20190521, end: 20190521
  2. DORZOLAMIDE [Concomitant]
     Active Substance: DORZOLAMIDE
     Dosage: 40 MILLIGRAM DAILY;
  3. SYMBICORT [Concomitant]
     Active Substance: BUDESONIDE\FORMOTEROL FUMARATE DIHYDRATE
     Dosage: 640/18 MICROGRAM, QD
  4. NOVAMINSULFON [Concomitant]
     Active Substance: METAMIZOLE
     Dosage: UNK
  5. VACCINE POLIO [Concomitant]
     Indication: TETANUS
  6. SALBUTAMOL [Suspect]
     Active Substance: ALBUTEROL
     Indication: PRODUCT USED FOR UNKNOWN INDICATION
     Dosage: 0.1 MILLIGRAM
     Route: 055
  7. JARDIANCE [Concomitant]
     Active Substance: EMPAGLIFLOZIN
     Dosage: 10 MILLIGRAM
  8. VACCINE POLIO [Concomitant]
     Indication: POLIOMYELITIS
  9. TRAZODON NEURAXPHARM [Concomitant]
     Active Substance: TRAZODONE HYDROCHLORIDE
     Dosage: 50 MILLIGRAM DAILY;
  10. DIPHTHERIA AND TETANUS TOXOIDS AND PERTUSSIS VACCINE ADSORBED NOS [Concomitant]
     Active Substance: DIPHTHERIA AND TETANUS TOXOIDS AND PERTUSSIS VACCINE
     Indication: POLIOMYELITIS
     Dosage: UNK 1 DAYS
     Dates: start: 20190521, end: 20190521
  11. TAMSU-Q [Concomitant]
     Dosage: 0.4 MILLIGRAM
  12. CANDESARTAN. [Concomitant]
     Active Substance: CANDESARTAN
     Dosage: 32 MILLIGRAM DAILY;
  13. VACCINE POLIO [Concomitant]
     Indication: DIPHTHERIA
     Dosage: UNK
  14. TRENANTONE [Suspect]
     Active Substance: LEUPROLIDE ACETATE
     Indication: PROSTATE CANCER
     Dosage: 11.25 MILLIGRAM, Q3MONTHS
     Route: 065
     Dates: start: 20190129, end: 20190702
  15. SALBUTAMOL [Concomitant]
     Active Substance: ALBUTEROL
     Indication: PRODUCT USED FOR UNKNOWN INDICATION
     Dosage: UNK
  16. PREGABALINE [Concomitant]
     Active Substance: PREGABALIN
     Dosage: 25 MILLIGRAM DAILY;
  17. CLOPIDOGREL [Concomitant]
     Active Substance: CLOPIDOGREL BISULFATE
  18. L-THYROXIN [Suspect]
     Active Substance: LEVOTHYROXINE SODIUM
     Indication: SURGERY
     Dosage: 75 MICROGRAM DAILY;
     Route: 065
  19. ESOMEPRAZOLE. [Concomitant]
     Active Substance: ESOMEPRAZOLE MAGNESIUM
     Dosage: 20 MILLIGRAM
  20. DIPHTHERIA AND TETANUS TOXOIDS AND PERTUSSIS VACCINE ADSORBED NOS [Concomitant]
     Active Substance: DIPHTHERIA AND TETANUS TOXOIDS AND PERTUSSIS VACCINE
     Indication: DIPHTHERIA
  21. SYMBICORT [Concomitant]
     Active Substance: BUDESONIDE\FORMOTEROL FUMARATE DIHYDRATE
     Indication: PRODUCT USED FOR UNKNOWN INDICATION
     Dosage: 160/4.5 MICROGRAM
  22. AMLODIPINE [Concomitant]
     Active Substance: AMLODIPINE BESYLATE
     Dosage: 5 MILLIGRAM
  23. HYDROCHLOROTHIAZIDE. [Concomitant]
     Active Substance: HYDROCHLOROTHIAZIDE
     Dosage: UNK
  24. TORASEMIDE [Concomitant]
     Active Substance: TORSEMIDE
     Dosage: 10 MILLIGRAM DAILY;
  25. DIPHTHERIA AND TETANUS TOXOIDS AND PERTUSSIS VACCINE ADSORBED NOS [Concomitant]
     Active Substance: DIPHTHERIA AND TETANUS TOXOIDS AND PERTUSSIS VACCINE
     Indication: TETANUS
     Dosage: UNK
  26. INSUMAN COMB [Concomitant]
     Active Substance: INSULIN HUMAN
     Dosage: 6 INTERNATIONAL UNIT
     Dates: start: 20190822
  27. FERRO SANOL [Concomitant]
     Active Substance: FERROUS GLYCINE SULFATE
     Dosage: UNK UNK, QD
  28. JANUVIA [Concomitant]
     Active Substance: SITAGLIPTIN PHOSPHATE
     Dosage: 50 MILLIGRAM
  29. VACCINE POLIO [Concomitant]
     Indication: PERTUSSIS

REACTIONS (40)
  - Palpitations [Unknown]
  - Nocturia [Unknown]
  - Dizziness [Not Recovered/Not Resolved]
  - Dysuria [Unknown]
  - Depression [Unknown]
  - Taste disorder [Unknown]
  - Headache [Unknown]
  - Testicular pain [Unknown]
  - Myalgia [Unknown]
  - Head discomfort [Unknown]
  - Gamma-glutamyltransferase increased [Unknown]
  - Blood urea increased [Unknown]
  - Fatigue [Unknown]
  - Nervousness [Unknown]
  - Stress [Unknown]
  - Blood glucose increased [Unknown]
  - Red blood cell count decreased [Unknown]
  - Arthralgia [Unknown]
  - Pain in extremity [Unknown]
  - Increased appetite [Unknown]
  - Insomnia [Not Recovered/Not Resolved]
  - Haematocrit decreased [Unknown]
  - Bone pain [Not Recovered/Not Resolved]
  - Night sweats [Unknown]
  - C-reactive protein increased [Unknown]
  - Blood creatinine increased [Not Recovered/Not Resolved]
  - Hot flush [Unknown]
  - Abdominal pain upper [Not Recovered/Not Resolved]
  - Blood pressure fluctuation [Not Recovered/Not Resolved]
  - Pollakiuria [Unknown]
  - Procalcitonin increased [Unknown]
  - Pneumonia [Unknown]
  - Weight increased [Unknown]
  - Flatulence [Not Recovered/Not Resolved]
  - Arrhythmia [Unknown]
  - Blood uric acid increased [Unknown]
  - Dry skin [Unknown]
  - Decreased appetite [Recovered/Resolved]
  - Hyperhidrosis [Recovered/Resolved]
  - Micturition urgency [Unknown]

NARRATIVE: CASE EVENT DATE: 2019
